FAERS Safety Report 23957080 (Version 4)
Quarter: 2024Q4

REPORT INFORMATION
  Report Type: Spontaneous
  Country: JP (occurrence: JP)
  Receive Date: 20240610
  Receipt Date: 20241119
  Transmission Date: 20250115
  Serious: Yes (Death)
  Sender: BAYER HEALTHCARE PHARMACEUTICALS INC.
  Company Number: JP-BAYER-2024A018577

PATIENT
  Age: 60 Year
  Sex: Male

DRUGS (2)
  1. NUBEQA [Suspect]
     Active Substance: DAROLUTAMIDE
     Indication: Hormone-dependent prostate cancer
  2. DOCETAXEL [Concomitant]
     Active Substance: DOCETAXEL
     Indication: Hormone-dependent prostate cancer

REACTIONS (3)
  - Thrombosis [Fatal]
  - Atrial fibrillation [Fatal]
  - Cardiac failure [Fatal]

NARRATIVE: CASE EVENT DATE: 20240113
